FAERS Safety Report 10692344 (Version 1)
Quarter: 2015Q1

REPORT INFORMATION
  Report Type: Spontaneous
  Country: US (occurrence: None)
  Receive Date: 20150102
  Receipt Date: 20150102
  Transmission Date: 20150720
  Serious: Yes (Other)
  Sender: FDA-Public Use
  Company Number: 2014-US-012329

PATIENT
  Sex: Female

DRUGS (1)
  1. XYREM [Suspect]
     Active Substance: SODIUM OXYBATE
     Indication: NARCOLEPSY
     Route: 048
     Dates: start: 201301, end: 2013

REACTIONS (6)
  - Inappropriate schedule of drug administration [None]
  - Surgery [None]
  - Nasopharyngitis [None]
  - Intervertebral disc protrusion [None]
  - Pain [None]
  - Joint injury [None]
